FAERS Safety Report 17804085 (Version 1)
Quarter: 2020Q2

REPORT INFORMATION
  Report Type: Spontaneous
  Country: IE (occurrence: IE)
  Receive Date: 20200519
  Receipt Date: 20200519
  Transmission Date: 20200714
  Serious: Yes (Other)
  Sender: FDA-Public Use
  Company Number: IE-GLAXOSMITHKLINE-IE2020079073

PATIENT
  Age: 7 Year
  Sex: Male

DRUGS (2)
  1. BECOTIDE [Suspect]
     Active Substance: BECLOMETHASONE DIPROPIONATE
     Dosage: UNK UNK, BID
     Route: 055
     Dates: start: 20200312
  2. BECOTIDE [Suspect]
     Active Substance: BECLOMETHASONE DIPROPIONATE
     Indication: ASTHMA
     Dosage: USED SPARINGLY FOR 2-3 YEARS
     Route: 055

REACTIONS (1)
  - Tooth erosion [Not Recovered/Not Resolved]
